FAERS Safety Report 14851961 (Version 1)
Quarter: 2018Q2

REPORT INFORMATION
  Report Type: Spontaneous
  Country: US (occurrence: US)
  Receive Date: 20180507
  Receipt Date: 20180507
  Transmission Date: 20180711
  Serious: Yes (Other)
  Sender: FDA-Public Use
  Company Number: US-ROCHE-2116706

PATIENT
  Age: 42 Year
  Sex: Male

DRUGS (4)
  1. LISINOPRIL. [Concomitant]
     Active Substance: LISINOPRIL
  2. LOVASTATIN. [Concomitant]
     Active Substance: LOVASTATIN
  3. ALTEPLASE. [Suspect]
     Active Substance: ALTEPLASE
     Indication: LATERAL MEDULLARY SYNDROME
     Route: 042
  4. ESCITALOPRAM [Concomitant]
     Active Substance: ESCITALOPRAM OXALATE

REACTIONS (2)
  - Brain oedema [Unknown]
  - Hydrocephalus [Unknown]
